FAERS Safety Report 7237964-7 (Version None)
Quarter: 2011Q1

REPORT INFORMATION
  Report Type: 
  Country: None (occurrence: None)
  Receive Date: 20110121
  Receipt Date: 20110110
  Transmission Date: 20110831
  Serious: Yes (Other)
  Sender: FDA-Public Use
  Company Number: PHHY2011US03114

PATIENT
  Age: 50 Year
  Sex: Male

DRUGS (2)
  1. PRAMIPEXOLE [Suspect]
     Dosage: 4.5 MG/DAY
  2. LEVODOPA [Suspect]
     Dosage: 600 MG/DAY

REACTIONS (3)
  - PATHOLOGICAL GAMBLING [None]
  - HYPERSEXUALITY [None]
  - JEALOUS DELUSION [None]
